FAERS Safety Report 8760215 (Version 1)
Quarter: 2012Q4

REPORT INFORMATION
  Report Type: Spontaneous
  Country: US (occurrence: None)
  Receive Date: 20120828
  Receipt Date: 20120828
  Transmission Date: 20130627
  Serious: Yes (Hospitalization)
  Sender: FDA-Public Use
  Company Number: None

PATIENT
  Age: 57 Year
  Sex: Female
  Weight: 52.16 kg

DRUGS (4)
  1. XYREM [Suspect]
     Indication: INSOMNIA
     Dosage: 2.25x2 7/17/12
2.75x2 7/24/12
     Dates: start: 20120717, end: 20120723
  2. XYREM [Suspect]
     Indication: JOINT PAIN
     Dosage: 2.25x2 7/17/12
2.75x2 7/24/12
     Dates: start: 20120717, end: 20120723
  3. XYREM [Suspect]
     Indication: INSOMNIA
     Dosage: 2.75 7/24/12-7/26/12
     Dates: start: 20120724, end: 20120726
  4. XYREM [Suspect]
     Indication: JOINT PAIN
     Dosage: 2.75 7/24/12-7/26/12
     Dates: start: 20120724, end: 20120726

REACTIONS (1)
  - Dyspnoea [None]
